FAERS Safety Report 8125859-6 (Version None)
Quarter: 2012Q1

REPORT INFORMATION
  Report Type: 
  Country: None (occurrence: None)
  Receive Date: 20120209
  Receipt Date: 20120206
  Transmission Date: 20120608
  Serious: No
  Sender: FDA-Public Use
  Company Number: US-BAYER-2012-013000

PATIENT
  Age: 79 Year
  Sex: Female
  Weight: 55 kg

DRUGS (2)
  1. MULTI-VITAMINS [Suspect]
     Dosage: 1 TABLET QD WITH FOOD
     Route: 048
     Dates: start: 20120101, end: 20120101
  2. ALEVE (CAPLET) [Suspect]
     Dosage: 1-2 TABLETS QD
     Route: 048
     Dates: start: 20110101

REACTIONS (2)
  - NO ADVERSE EVENT [None]
  - NAUSEA [None]
